FAERS Safety Report 8829397 (Version 2)
Quarter: 2012Q4

REPORT INFORMATION
  Report Type: 
  Country: FR (occurrence: FR)
  Receive Date: 20121008
  Receipt Date: 20121102
  Transmission Date: 20130627
  Serious: Yes (Other)
  Sender: FDA-Public Use
  Company Number: FR-ABBOTT-12P-056-0991316-00

PATIENT
  Age: 52 Year
  Sex: Male

DRUGS (5)
  1. DEPAKINE CHRONO [Suspect]
     Indication: EPILEPSY
     Route: 048
     Dates: start: 1980
  2. DIAZEPAM [Suspect]
     Indication: PRODUCT USED FOR UNKNOWN INDICATION
     Route: 048
  3. GARDENAL [Concomitant]
     Indication: PRODUCT USED FOR UNKNOWN INDICATION
  4. TIAPRIDE [Concomitant]
     Indication: PRODUCT USED FOR UNKNOWN INDICATION
  5. STABLON [Concomitant]
     Indication: PRODUCT USED FOR UNKNOWN INDICATION

REACTIONS (2)
  - Convulsion [Recovered/Resolved]
  - Petit mal epilepsy [None]
